FAERS Safety Report 5389663-4 (Version None)
Quarter: 2007Q3

REPORT INFORMATION
  Report Type: 
  Country: None (occurrence: None)
  Receive Date: 20070717
  Receipt Date: 20070713
  Transmission Date: 20080115
  Serious: Yes (Other)
  Sender: FDA-Public Use
  Company Number: US-SHR-US-2006-037135

PATIENT
  Age: 36 Year
  Sex: Female

DRUGS (1)
  1. MIRENA [Suspect]
     Indication: CONTRACEPTION
     Dosage: 20 A?G/DAY, CONT
     Route: 015
     Dates: start: 20041202

REACTIONS (2)
  - BENIGN HYDATIDIFORM MOLE [None]
  - HYPOMENORRHOEA [None]
